FAERS Safety Report 10250150 (Version 1)
Quarter: 2014Q2

REPORT INFORMATION
  Report Type: Spontaneous
  Country: US (occurrence: US)
  Receive Date: 20140620
  Receipt Date: 20140620
  Transmission Date: 20141212
  Serious: No
  Sender: FDA-Public Use
  Company Number: US-BRISTOL-MYERS SQUIBB COMPANY-20696878

PATIENT
  Age: 71 Year
  Sex: Male

DRUGS (2)
  1. ELIQUIS [Suspect]
     Dates: start: 20140501
  2. MULTIVITAMINS [Concomitant]

REACTIONS (2)
  - Prostatic pain [Unknown]
  - Dysuria [Unknown]
